FAERS Safety Report 10801694 (Version 1)
Quarter: 2015Q1

REPORT INFORMATION
  Report Type: Spontaneous
  Country: IT (occurrence: IT)
  Receive Date: 20150217
  Receipt Date: 20150217
  Transmission Date: 20150721
  Serious: Yes (Other)
  Sender: FDA-Public Use
  Company Number: IT-JNJFOC-20150210074

PATIENT
  Age: 18 Year
  Sex: Female

DRUGS (3)
  1. REMICADE [Suspect]
     Active Substance: INFLIXIMAB
     Indication: CROHN^S DISEASE
     Dosage: FREQUENCY-CYCLIC
     Route: 042
     Dates: start: 20030527
  2. REMICADE [Suspect]
     Active Substance: INFLIXIMAB
     Indication: CROHN^S DISEASE
     Dosage: FREQUENCY-CYCLIC??5TH INFUSION
     Route: 042
     Dates: start: 20031220, end: 20031220
  3. AZATHIOPRINE. [Concomitant]
     Active Substance: AZATHIOPRINE
     Indication: CROHN^S DISEASE
     Route: 048

REACTIONS (5)
  - Rash generalised [Recovered/Resolved]
  - Infusion related reaction [Recovered/Resolved]
  - Dyspnoea [Recovered/Resolved]
  - Anal fistula [Unknown]
  - Vomiting [Recovered/Resolved]

NARRATIVE: CASE EVENT DATE: 20031220
